FAERS Safety Report 4301715-6 (Version None)
Quarter: 2004Q1

REPORT INFORMATION
  Report Type: 
  Country: None (occurrence: None)
  Receive Date: 20040218
  Receipt Date: 20031117
  Transmission Date: 20041129
  Serious: Yes (Hospitalization)
  Sender: FDA-Public Use
  Company Number: 2003-11-1180

PATIENT
  Age: 42 Year
  Sex: Female
  Weight: 38.5557 kg

DRUGS (5)
  1. PEG-INTRON [Suspect]
     Dosage: 80 MCG QW SUBCUTANEOUS
     Route: 058
     Dates: start: 20030701
  2. REBETOL [Suspect]
     Route: 048
     Dates: start: 20030701
  3. ALPRAZOLAM [Concomitant]
  4. BEXTRA [Concomitant]
  5. ANTIDEPRESSANTS (NOS) [Concomitant]

REACTIONS (10)
  - ASTHENIA [None]
  - DEPRESSED LEVEL OF CONSCIOUSNESS [None]
  - DEPRESSION [None]
  - DIFFICULTY IN WALKING [None]
  - HEADACHE [None]
  - HYPERSOMNIA [None]
  - MALAISE [None]
  - NAUSEA [None]
  - VISION BLURRED [None]
  - WEIGHT DECREASED [None]
